FAERS Safety Report 7550209-3 (Version None)
Quarter: 2011Q2

REPORT INFORMATION
  Report Type: 
  Country: None (occurrence: None)
  Receive Date: 20110615
  Receipt Date: 20110601
  Transmission Date: 20111010
  Serious: Yes (Hospitalization)
  Sender: FDA-Public Use
  Company Number: PL-UCBSA-034735

PATIENT
  Age: 40 Year
  Sex: Female

DRUGS (11)
  1. DEPAKENE [Concomitant]
  2. KEPPRA [Suspect]
     Dates: start: 20070101, end: 20070101
  3. KEPPRA [Suspect]
     Dates: start: 20100101, end: 20100101
  4. DEPAKENE [Concomitant]
     Dosage: DOSE DECREASED
  5. LAMITRIN [Concomitant]
     Dates: start: 20000101, end: 20070101
  6. DEPAKENE [Concomitant]
     Dosage: DOSE INCREASED
  7. DEPAKENE [Concomitant]
  8. KEPPRA [Suspect]
     Dates: start: 20070101, end: 20070101
  9. DEPAKENE [Concomitant]
     Dates: start: 20000101, end: 20070101
  10. LAMITRIN [Concomitant]
     Dosage: 50-75 MG
  11. CARBAMAZEPINE [Suspect]
     Dates: end: 20100101

REACTIONS (11)
  - PANCREATITIS [None]
  - INSOMNIA [None]
  - ABDOMINAL PAIN [None]
  - CONVULSION [None]
  - MYOCLONIC EPILEPSY [None]
  - STATUS EPILEPTICUS [None]
  - AGGRESSION [None]
  - PSYCHOMOTOR HYPERACTIVITY [None]
  - DIARRHOEA [None]
  - HYPONATRAEMIA [None]
  - ABNORMAL BEHAVIOUR [None]
